FAERS Safety Report 21323088 (Version 8)
Quarter: 2022Q4

REPORT INFORMATION
  Report Type: Report from Study
  Country: GB (occurrence: GB)
  Receive Date: 20220912
  Receipt Date: 20221230
  Transmission Date: 20230112
  Serious: Yes (Hospitalization)
  Sender: FDA-Public Use
  Company Number: GB-NOVARTISPH-NVSC2022GB198137

PATIENT
  Age: 82 Year
  Sex: Female
  Weight: 99.2 kg

DRUGS (17)
  1. SECUKINUMAB [Suspect]
     Active Substance: SECUKINUMAB
     Indication: Giant cell arteritis
     Dosage: UNK
     Route: 058
     Dates: start: 20220518
  2. PREDNISONE [Suspect]
     Active Substance: PREDNISONE
     Indication: Giant cell arteritis
     Dosage: 40 MG, QD
     Route: 048
     Dates: start: 20220518
  3. PREDNISONE [Suspect]
     Active Substance: PREDNISONE
     Dosage: UNK
     Route: 048
     Dates: start: 20220622
  4. THYROXINE [Concomitant]
     Active Substance: LEVOTHYROXINE
     Indication: Hypothyroidism
     Dosage: UNK
     Route: 065
     Dates: start: 2000
  5. CODEINE [Concomitant]
     Active Substance: CODEINE
     Indication: Arthralgia
     Dosage: UNK
     Route: 065
     Dates: start: 20220624
  6. OXYCODONE [Concomitant]
     Active Substance: OXYCODONE
     Indication: Osteonecrosis
     Dosage: UNK
     Route: 065
     Dates: start: 20220805
  7. TINZAPARIN [Concomitant]
     Active Substance: TINZAPARIN
     Indication: General physical condition
     Dosage: UNK
     Route: 065
     Dates: start: 20220823
  8. HYDROCORTISONE [Concomitant]
     Active Substance: HYDROCORTISONE
     Indication: Giant cell arteritis
     Dosage: UNK
     Route: 065
     Dates: start: 20220822, end: 20220822
  9. PREDNISOLONE [Concomitant]
     Active Substance: PREDNISOLONE
     Indication: Giant cell arteritis
     Dosage: UNK
     Route: 065
     Dates: start: 20220823, end: 20220825
  10. SERETIDE [Concomitant]
     Active Substance: FLUTICASONE PROPIONATE\SALMETEROL XINAFOATE
     Indication: Asthma
     Dosage: UNK
     Route: 065
     Dates: start: 1975
  11. VENTOLIN [Concomitant]
     Active Substance: ALBUTEROL SULFATE
     Indication: Asthma
     Dosage: UNK
     Route: 065
     Dates: start: 1975
  12. CALCIUM CARBONATE\CHOLECALCIFEROL [Concomitant]
     Active Substance: CALCIUM CARBONATE\CHOLECALCIFEROL
     Indication: Prophylaxis
     Dosage: UNK
     Route: 065
     Dates: start: 20150101
  13. CALCIUM CARBONATE\CHOLECALCIFEROL [Concomitant]
     Active Substance: CALCIUM CARBONATE\CHOLECALCIFEROL
     Indication: General physical condition
  14. LANSOPRAZOLE [Concomitant]
     Active Substance: LANSOPRAZOLE
     Indication: Gastritis
     Dosage: UNK
     Route: 065
     Dates: start: 20220518
  15. PRAVASTATIN [Concomitant]
     Active Substance: PRAVASTATIN
     Indication: General physical condition
     Dosage: UNK
     Route: 065
     Dates: start: 20220516
  16. ACETAMINOPHEN [Concomitant]
     Active Substance: ACETAMINOPHEN
     Indication: Arthralgia
     Dosage: UNK
     Route: 065
     Dates: start: 20220603
  17. RISEDRONATE SODIUM [Concomitant]
     Active Substance: RISEDRONATE SODIUM
     Indication: Prophylaxis
     Dosage: UNK
     Route: 065
     Dates: start: 20220612

REACTIONS (1)
  - Cellulitis [Recovered/Resolved]

NARRATIVE: CASE EVENT DATE: 20220901
